FAERS Safety Report 15414612 (Version 2)
Quarter: 2018Q3

REPORT INFORMATION
  Report Type: Spontaneous
  Country: US (occurrence: US)
  Receive Date: 20180921
  Receipt Date: 20180925
  Transmission Date: 20181010
  Serious: No
  Sender: FDA-Public Use
  Company Number: US-PFIZER INC-2018347879

PATIENT
  Sex: Male

DRUGS (1)
  1. LYRICA [Suspect]
     Active Substance: PREGABALIN
     Indication: PAIN
     Dosage: 1000?1200 MG, SINGLE (ONCE)

REACTIONS (6)
  - Intentional overdose [Unknown]
  - Insomnia [Unknown]
  - Aggression [Unknown]
  - Irritability [Unknown]
  - Feeling abnormal [Unknown]
  - Abnormal behaviour [Unknown]
